FAERS Safety Report 18218091 (Version 2)
Quarter: 2020Q3

REPORT INFORMATION
  Report Type: Spontaneous
  Country: CA (occurrence: CA)
  Receive Date: 20200901
  Receipt Date: 20200909
  Transmission Date: 20201103
  Serious: Yes (Death)
  Sender: FDA-Public Use
  Company Number: CA-ROCHE-2669381

PATIENT
  Age: 88 Year
  Sex: Male

DRUGS (1)
  1. LUCENTIS [Suspect]
     Active Substance: RANIBIZUMAB
     Indication: AGE-RELATED MACULAR DEGENERATION
     Dosage: 10 MG/ML
     Route: 058
     Dates: end: 20200608

REACTIONS (1)
  - Death [Fatal]

NARRATIVE: CASE EVENT DATE: 20200807
